FAERS Safety Report 7101296-8 (Version None)
Quarter: 2010Q4

REPORT INFORMATION
  Report Type: 
  Country: None (occurrence: None)
  Receive Date: 20101115
  Receipt Date: 20101104
  Transmission Date: 20110411
  Serious: No
  Sender: FDA-Public Use
  Company Number: US-B.I. PHARMACEUTICALS,INC./RIDGEFIELD-2010-BP-12411BP

PATIENT
  Sex: Female

DRUGS (4)
  1. MIRAPEX [Suspect]
     Indication: RESTLESS LEGS SYNDROME
     Dosage: 0.25 MG
     Route: 048
     Dates: start: 20100101, end: 20100101
  2. MIRAPEX [Suspect]
     Dosage: 0.125 MG
     Route: 048
     Dates: start: 20100801
  3. MIRAPEX [Suspect]
     Dosage: 0.5 MG
     Route: 048
     Dates: start: 20101001, end: 20101001
  4. MIRAPEX [Suspect]
     Dosage: 0.25 MG
     Route: 048
     Dates: start: 20101001

REACTIONS (8)
  - ASTHENIA [None]
  - BACK PAIN [None]
  - EXERCISE TOLERANCE DECREASED [None]
  - FALL [None]
  - GAIT DISTURBANCE [None]
  - HYPOAESTHESIA [None]
  - INSOMNIA [None]
  - RESTLESS LEGS SYNDROME [None]
